FAERS Safety Report 8516527-7 (Version None)
Quarter: 2012Q3

REPORT INFORMATION
  Report Type: 
  Country: None (occurrence: None)
  Receive Date: 20120711
  Receipt Date: 20120711
  Transmission Date: 20120928
  Serious: Yes (Other)
  Sender: FDA-Public Use
  Company Number: None

PATIENT
  Age: 56 Year
  Sex: Female

DRUGS (1)
  1. SIMPONI SMARTJECT 50MG/0.5 ML [Suspect]
     Dosage: 50MG ONCE A MONTH SUBCUTANEOUSLY
     Route: 058
     Dates: start: 20111215

REACTIONS (2)
  - DEAFNESS [None]
  - VERTIGO [None]
